FAERS Safety Report 10071743 (Version 5)
Quarter: 2015Q1

REPORT INFORMATION
  Report Type: Report from Study
  Country: DE (occurrence: DE)
  Receive Date: 20140411
  Receipt Date: 20150209
  Transmission Date: 20150720
  Serious: Yes (Hospitalization, Other)
  Sender: FDA-Public Use
  Company Number: DE-ROCHE-1334781

PATIENT
  Age: 75 Year
  Sex: Male
  Weight: 75.5 kg

DRUGS (13)
  1. 5-FLUOROURACIL [Suspect]
     Active Substance: FLUOROURACIL
     Indication: COLORECTAL CANCER
     Dosage: 30/200/2000 MG/M2
     Route: 042
     Dates: start: 20131126, end: 20131127
  2. IRINOTECAN [Suspect]
     Active Substance: IRINOTECAN
     Route: 042
     Dates: start: 20140130, end: 20140130
  3. BEVACIZUMAB [Suspect]
     Active Substance: BEVACIZUMAB
     Route: 042
     Dates: start: 20140131, end: 20140131
  4. CORVO [Concomitant]
     Indication: HYPERTENSION
     Route: 048
  5. AMPHO MORONAL [Concomitant]
     Indication: STOMATITIS
     Route: 065
     Dates: start: 20131203, end: 201312
  6. BISOPROLOL [Concomitant]
     Active Substance: BISOPROLOL
     Indication: HYPERTENSION
     Route: 048
  7. IRINOTECAN [Suspect]
     Active Substance: IRINOTECAN
     Indication: COLORECTAL CANCER
     Dosage: 30/200/2000 MG/M2
     Route: 042
     Dates: start: 20131126, end: 20131126
  8. 5-FLUOROURACIL [Suspect]
     Active Substance: FLUOROURACIL
     Dosage: 30/200/2000 MG/M2
     Route: 042
     Dates: start: 20140130, end: 20140131
  9. BEVACIZUMAB [Suspect]
     Active Substance: BEVACIZUMAB
     Indication: COLORECTAL CANCER
     Route: 042
     Dates: start: 20131127, end: 20131127
  10. FOLINIC ACID [Suspect]
     Active Substance: LEUCOVORIN
     Indication: COLORECTAL CANCER
     Dosage: 30/200/2000 MG/M2
     Route: 042
     Dates: start: 20131126, end: 20131126
  11. FOLINIC ACID [Suspect]
     Active Substance: LEUCOVORIN
     Route: 042
     Dates: start: 20140130, end: 20140130
  12. METFORMIN [Concomitant]
     Active Substance: METFORMIN HYDROCHLORIDE
     Indication: DIABETES MELLITUS
  13. TETRACYCLIN [Concomitant]
     Indication: STOMATITIS
     Route: 065
     Dates: start: 20131203, end: 201312

REACTIONS (10)
  - Acute kidney injury [Recovered/Resolved]
  - Cerebral ischaemia [Unknown]
  - Acute prerenal failure [Unknown]
  - Hemiplegia [Not Recovered/Not Resolved]
  - Dehydration [Not Recovered/Not Resolved]
  - Infection [Unknown]
  - Stoma site abscess [Recovered/Resolved with Sequelae]
  - Diarrhoea [Recovered/Resolved]
  - Metabolic acidosis [Unknown]
  - Metastases to lymph nodes [Unknown]

NARRATIVE: CASE EVENT DATE: 2014
